FAERS Safety Report 8154393-2 (Version None)
Quarter: 2012Q1

REPORT INFORMATION
  Report Type: 
  Country: None (occurrence: None)
  Receive Date: 20120103
  Receipt Date: 20110829
  Transmission Date: 20120608
  Serious: No
  Sender: FDA-Public Use
  Company Number: AE-2011-00927

PATIENT
  Age: 61 Year
  Weight: 78.4723 kg

DRUGS (8)
  1. INCIVEK [Suspect]
     Dosage: 2250 MG (750 MG, 3 IN 1 D),
     Dates: start: 20110812, end: 20110818
  2. HYDROCHLOROTHIAZIDE [Concomitant]
  3. LISINOPRIL [Concomitant]
  4. AMLODIPINE [Concomitant]
  5. RIBAVIRIN [Concomitant]
  6. PEG-INTRON [Concomitant]
  7. MULTIVITAMIN [Concomitant]
  8. CALCIUM CARBONATE [Concomitant]

REACTIONS (5)
  - ANORECTAL DISCOMFORT [None]
  - PROCTALGIA [None]
  - DECREASED APPETITE [None]
  - DIARRHOEA [None]
  - HAEMORRHOIDAL HAEMORRHAGE [None]
